FAERS Safety Report 4758521-8 (Version None)
Quarter: 2005Q3

REPORT INFORMATION
  Report Type: 
  Country: None (occurrence: None)
  Receive Date: 20050830
  Receipt Date: 20050830
  Transmission Date: 20060218
  Serious: Yes (Hospitalization)
  Sender: FDA-Public Use
  Company Number: None

PATIENT
  Sex: Male
  Weight: 145.151 kg

DRUGS (2)
  1. RYTHMOL [Suspect]
     Indication: ARRHYTHMIA
     Dosage: 225 MG BID PO
     Route: 048
     Dates: start: 20050817, end: 20050826
  2. RYTHMOL [Suspect]
     Indication: PALPITATIONS
     Dosage: 225 MG BID PO
     Route: 048
     Dates: start: 20050817, end: 20050826

REACTIONS (3)
  - DISCOMFORT [None]
  - HEART RATE INCREASED [None]
  - HEART RATE IRREGULAR [None]
